FAERS Safety Report 4442404-7 (Version None)
Quarter: 2004Q3

REPORT INFORMATION
  Report Type: 
  Country: None (occurrence: None)
  Receive Date: 20040903
  Receipt Date: 20040706
  Transmission Date: 20050211
  Serious: Yes (Other)
  Sender: FDA-Public Use
  Company Number: 2004UW13874

PATIENT
  Age: 60 Year
  Sex: Female
  Weight: 73.0291 kg

DRUGS (1)
  1. CRESTOR [Suspect]
     Indication: BLOOD CHOLESTEROL INCREASED
     Dosage: 10 MG PO
     Route: 048

REACTIONS (6)
  - ABDOMINAL PAIN [None]
  - CONSTIPATION [None]
  - FAECES DISCOLOURED [None]
  - HAEMATOCHEZIA [None]
  - NERVOUSNESS [None]
  - PRURITUS [None]
